FAERS Safety Report 21722525 (Version 1)
Quarter: 2022Q4

REPORT INFORMATION
  Report Type: Spontaneous
  Country: US (occurrence: US)
  Receive Date: 20221213
  Receipt Date: 20221213
  Transmission Date: 20230113
  Serious: Yes (Other)
  Sender: FDA-Public Use
  Company Number: US-ADMA BIOLOGICS INC.-US-2022ADM000104

PATIENT
  Sex: Female

DRUGS (1)
  1. BIVIGAM [Suspect]
     Active Substance: HUMAN IMMUNOGLOBULIN G
     Indication: Pulmonary fibrosis
     Dosage: 30 GRAM, 3W
     Route: 042
     Dates: start: 202206

REACTIONS (13)
  - Haemorrhage [Unknown]
  - Dyspnoea [Unknown]
  - Hypersomnia [Unknown]
  - Vitamin B12 deficiency [Unknown]
  - Condition aggravated [Unknown]
  - Haemorrhoidal haemorrhage [Unknown]
  - Contusion [Unknown]
  - Unevaluable event [Unknown]
  - Fatigue [Unknown]
  - Headache [Unknown]
  - Nausea [Unknown]
  - Pain [Unknown]
  - Off label use [Unknown]

NARRATIVE: CASE EVENT DATE: 20220101
